FAERS Safety Report 8185277-1 (Version None)
Quarter: 2012Q1

REPORT INFORMATION
  Report Type: 
  Country: None (occurrence: None)
  Receive Date: 20120305
  Receipt Date: 20120224
  Transmission Date: 20120608
  Serious: Yes (Other)
  Sender: FDA-Public Use
  Company Number: PHHY2012JP002706

PATIENT
  Sex: Male
  Weight: 62 kg

DRUGS (3)
  1. ZOMETA [Suspect]
     Indication: METASTASES TO BONE
     Dosage: 4 MG, PER ADMINISTRATION
     Route: 041
     Dates: start: 20111228
  2. CASODEX [Concomitant]
     Indication: PROSTATE CANCER
     Dosage: 80 MG, UNK
     Route: 048
     Dates: start: 20111214, end: 20120222
  3. LEUPROLIDE ACETATE [Concomitant]
     Indication: PROSTATE CANCER
     Dosage: 37.5 MG, UNK
     Route: 058
     Dates: start: 20120206, end: 20120222

REACTIONS (2)
  - BLOOD ALKALINE PHOSPHATASE INCREASED [None]
  - FREE PROSTATE-SPECIFIC ANTIGEN DECREASED [None]
